FAERS Safety Report 19910254 (Version 2)
Quarter: 2021Q4

REPORT INFORMATION
  Report Type: Report from Study
  Country: None (occurrence: US)
  Receive Date: 20211004
  Receipt Date: 20211010
  Transmission Date: 20220303
  Serious: Yes (Death, Life-Threatening)
  Sender: FDA-Public Use
  Company Number: US-ABBVIE-21K-163-4104953-00

PATIENT
  Age: 67 Year
  Sex: Male
  Weight: 113.5 kg

DRUGS (3)
  1. DUOPA [Suspect]
     Active Substance: CARBIDOPA\LEVODOPA
     Indication: Parkinson^s disease
     Dosage: 4.63 MG/ML 20 MG/ML
     Route: 050
     Dates: start: 20160608, end: 202109
  2. DUOPA [Suspect]
     Active Substance: CARBIDOPA\LEVODOPA
  3. SOMA [Concomitant]
     Active Substance: CARISOPRODOL
     Indication: Product used for unknown indication
     Route: 048

REACTIONS (12)
  - Death [Fatal]
  - Endotracheal intubation [Unknown]
  - Intentional product misuse [Unknown]
  - Condition aggravated [Unknown]
  - Device leakage [Unknown]
  - Intentional medical device removal by patient [Unknown]
  - Dehydration [Unknown]
  - Device dislocation [Unknown]
  - Blood creatinine increased [Unknown]
  - Obsessive-compulsive disorder [Unknown]
  - Confusional state [Unknown]
  - Muscle rigidity [Unknown]

NARRATIVE: CASE EVENT DATE: 20210901
